FAERS Safety Report 21124438 (Version 1)
Quarter: 2022Q3

REPORT INFORMATION
  Report Type: Spontaneous
  Country: IN (occurrence: IN)
  Receive Date: 20220725
  Receipt Date: 20220725
  Transmission Date: 20221027
  Serious: Yes (Death, Hospitalization, Other)
  Sender: FDA-Public Use
  Company Number: IN-ASTELLAS-2022US025581

PATIENT
  Age: 37 Year
  Sex: Male

DRUGS (2)
  1. TACROLIMUS [Suspect]
     Active Substance: TACROLIMUS
     Indication: Liver transplant
     Dosage: UNK UNK, UNKNOWN FREQ.
     Route: 065
  2. AMPHOTERICIN B [Concomitant]
     Active Substance: AMPHOTERICIN B
     Indication: Prophylaxis
     Route: 065

REACTIONS (9)
  - Thrombotic thrombocytopenic purpura [Fatal]
  - Systemic candida [Unknown]
  - Candida infection [Unknown]
  - Burkholderia cepacia complex infection [Unknown]
  - Pseudomonal bacteraemia [Unknown]
  - Enterococcal infection [Unknown]
  - Enterococcal infection [Unknown]
  - Liver abscess [Unknown]
  - Bronchopulmonary aspergillosis [Unknown]
